FAERS Safety Report 4263997-9 (Version None)
Quarter: 2004Q1

REPORT INFORMATION
  Report Type: 
  Country: None (occurrence: None)
  Receive Date: 20040106
  Receipt Date: 20031216
  Transmission Date: 20041129
  Serious: Yes (Hospitalization)
  Sender: FDA-Public Use
  Company Number: GB-BRISTOL-MYERS SQUIBB COMPANY-12458444

PATIENT
  Age: 43 Year
  Sex: Female
  Weight: 71 kg

DRUGS (4)
  1. PACLITAXEL [Suspect]
     Indication: BREAST CANCER
     Route: 042
     Dates: start: 20031118, end: 20031118
  2. CYCLOPHOSPHAMIDE [Suspect]
     Indication: BREAST CANCER
     Route: 042
     Dates: start: 20030930, end: 20030930
  3. EPIRUBICIN [Suspect]
     Indication: BREAST CANCER
     Route: 042
     Dates: start: 20030930, end: 20030930
  4. GEMZAR [Suspect]
     Indication: BREAST CANCER
     Route: 042
     Dates: start: 20031125, end: 20031125

REACTIONS (3)
  - CHEST WALL PAIN [None]
  - DYSPHAGIA [None]
  - LYMPHANGITIS [None]
